FAERS Safety Report 7960806-9 (Version None)
Quarter: 2011Q4

REPORT INFORMATION
  Report Type: 
  Country: None (occurrence: None)
  Receive Date: 20111207
  Receipt Date: 20111202
  Transmission Date: 20120403
  Serious: Yes (Hospitalization)
  Sender: FDA-Public Use
  Company Number: US-BIOGENIDEC-2011BI045995

PATIENT
  Age: 57 Year
  Sex: Male

DRUGS (3)
  1. AVONEX [Concomitant]
     Indication: MULTIPLE SCLEROSIS
     Route: 030
  2. GILENYA [Concomitant]
     Indication: MULTIPLE SCLEROSIS
  3. TYSABRI [Suspect]
     Indication: MULTIPLE SCLEROSIS
     Route: 042
     Dates: start: 20100826, end: 20110909

REACTIONS (1)
  - PNEUMONIA [None]
